FAERS Safety Report 4944981-6 (Version None)
Quarter: 2006Q1

REPORT INFORMATION
  Report Type: 
  Country: None (occurrence: None)
  Receive Date: 20060117
  Receipt Date: 20050606
  Transmission Date: 20060701
  Serious: Yes (Death)
  Sender: FDA-Public Use
  Company Number: A03200501705

PATIENT
  Sex: Male

DRUGS (4)
  1. PLAVIX [Suspect]
     Dosage: ORAL
     Route: 048
  2. ASPIRIN [Suspect]
     Dosage: ORAL
     Route: 048
  3. HEPARIN [Suspect]
  4. INTEGRILIN [Suspect]
     Dosage: 180 UG/KG IV FOLLOWED BY 2 UG/KG/MIN CONTINUOUS INFUSION - INTRAVENOUS NOS
     Route: 042

REACTIONS (1)
  - GASTROINTESTINAL HAEMORRHAGE [None]
